FAERS Safety Report 7368122-3 (Version None)
Quarter: 2011Q1

REPORT INFORMATION
  Report Type: 
  Country: None (occurrence: None)
  Receive Date: 20110311
  Receipt Date: 20110225
  Transmission Date: 20110831
  Serious: Yes (Hospitalization)
  Sender: FDA-Public Use
  Company Number: 014013

PATIENT
  Age: 71 Year
  Sex: Male
  Weight: 61 kg

DRUGS (12)
  1. SANCOBA (CYANOCOBALAMIN) [Concomitant]
  2. LEVOFLOXACIN [Concomitant]
  3. BASEN (VOGLIBOSE) [Concomitant]
  4. DIAMOX [Concomitant]
  5. LUMIGAN [Concomitant]
  6. MICARDIS [Concomitant]
  7. ASPARA (ASPARTATE OPOTASSIUIM, MAGNESIUM ASPARTATE) [Concomitant]
  8. AMLODIPINE [Concomitant]
  9. PEGAPTANIB SODIUM; PLACEBO (CODE NOT BROKEN) [Suspect]
     Indication: DIABETIC RETINAL OEDEMA
     Dates: start: 20101115, end: 20110204
  10. COSOPT [Concomitant]
  11. GLICLAZIDE (GLICLAZIDE) [Concomitant]
  12. LOPERAMIDE HCL [Concomitant]

REACTIONS (5)
  - DIABETIC RETINOPATHY [None]
  - DISEASE PROGRESSION [None]
  - VITREOUS HAEMORRHAGE [None]
  - PROCEDURAL PAIN [None]
  - GLAUCOMA [None]
